FAERS Safety Report 7360600-6 (Version None)
Quarter: 2011Q1

REPORT INFORMATION
  Report Type: 
  Country: None (occurrence: None)
  Receive Date: 20110318
  Receipt Date: 20110309
  Transmission Date: 20110831
  Serious: Yes (Hospitalization, Other)
  Sender: FDA-Public Use
  Company Number: US-B.I. PHARMACEUTICALS,INC./RIDGEFIELD-2011-BP-02953BP

PATIENT
  Age: 88 Year
  Sex: Female

DRUGS (3)
  1. PRADAXA [Suspect]
     Dosage: 150 MG
  2. PRADAXA [Suspect]
     Indication: ATRIAL FIBRILLATION
     Dosage: 300 MG
     Dates: start: 20101201
  3. PRADAXA [Suspect]

REACTIONS (2)
  - PANCREATITIS RELAPSING [None]
  - PANCREATITIS [None]
